FAERS Safety Report 7217539-6 (Version None)
Quarter: 2011Q1

REPORT INFORMATION
  Report Type: 
  Country: None (occurrence: None)
  Receive Date: 20110110
  Receipt Date: 20110103
  Transmission Date: 20110831
  Serious: Yes (Other)
  Sender: FDA-Public Use
  Company Number: NL-PFIZER INC-2011000195

PATIENT
  Age: 34 Year
  Sex: Female

DRUGS (2)
  1. DETRUSITOL [Suspect]
     Dosage: 4 MG, UNK
  2. ATRIPLA [Concomitant]

REACTIONS (2)
  - URINARY TRACT DISORDER [None]
  - RENAL IMPAIRMENT [None]
